FAERS Safety Report 18122897 (Version 1)
Quarter: 2020Q3

REPORT INFORMATION
  Report Type: Spontaneous
  Country: JP (occurrence: JP)
  Receive Date: 20200807
  Receipt Date: 20200807
  Transmission Date: 20201103
  Serious: Yes (Hospitalization, Other)
  Sender: FDA-Public Use
  Company Number: JP-LUPIN PHARMACEUTICALS INC.-2020-04188

PATIENT
  Age: 78 Year
  Sex: Male

DRUGS (2)
  1. CEFTRIAXONE. [Suspect]
     Active Substance: CEFTRIAXONE
     Indication: SPONDYLITIS
     Dosage: 2 GRAM, QD
     Route: 065
  2. CEFAZOLINE [Suspect]
     Active Substance: CEFAZOLIN SODIUM
     Indication: SPONDYLITIS
     Dosage: 3 GRAM, QD
     Route: 065

REACTIONS (3)
  - Bile duct stone [Recovered/Resolved]
  - Urinary tract infection [Unknown]
  - Pseudocholelithiasis [Recovered/Resolved]
